FAERS Safety Report 6893073-8 (Version None)
Quarter: 2010Q3

REPORT INFORMATION
  Report Type: 
  Country: None (occurrence: None)
  Receive Date: 20100731
  Receipt Date: 20090325
  Transmission Date: 20110219
  Serious: No
  Sender: FDA-Public Use
  Company Number: US-PFIZER INC-2008151189

PATIENT
  Sex: Female
  Weight: 58.957 kg

DRUGS (3)
  1. NEURONTIN [Suspect]
     Indication: ANXIETY
     Dates: start: 20081001, end: 20081029
  2. REMERON [Concomitant]
     Dosage: UNK
  3. BENZODIAZEPINE DERIVATIVES [Concomitant]
     Dosage: UNK

REACTIONS (4)
  - DYSPHAGIA [None]
  - GAIT DISTURBANCE [None]
  - HYPERSENSITIVITY [None]
  - SPEECH DISORDER [None]
